FAERS Safety Report 4887452-8 (Version None)
Quarter: 2006Q1

REPORT INFORMATION
  Report Type: 
  Country: None (occurrence: None)
  Receive Date: 20060123
  Receipt Date: 20051028
  Transmission Date: 20060701
  Serious: Yes (Hospitalization)
  Sender: FDA-Public Use
  Company Number: 2005AC01715

PATIENT
  Age: 23149 Day
  Sex: Male

DRUGS (21)
  1. IRESSA [Suspect]
     Indication: LARYNGEAL CANCER
     Route: 048
     Dates: start: 20051006, end: 20051029
  2. IRESSA [Suspect]
     Dosage: DOSE REDUCED DUE TO ADVERSE EVENT
     Route: 048
     Dates: start: 20051104, end: 20051108
  3. IRESSA [Suspect]
     Dosage: DOSE REDUCED DUE TO ADVERSE EVENT
     Route: 048
     Dates: start: 20051108
  4. CISPLATIN [Suspect]
     Indication: LARYNGEAL CANCER
     Route: 042
     Dates: start: 20051012, end: 20051012
  5. CISPLATIN [Suspect]
     Route: 042
     Dates: start: 20051102, end: 20051102
  6. RADIOTHERAPY [Suspect]
     Indication: LARYNGEAL CANCER
     Dosage: 2 GY PER DAY
     Dates: start: 20051013, end: 20051014
  7. RADIOTHERAPY [Suspect]
     Dosage: 2 GY PER DAY
     Dates: start: 20051017, end: 20051019
  8. RADIOTHERAPY [Suspect]
     Dosage: 2 GY PER DAY
     Dates: start: 20051020, end: 20051021
  9. RADIOTHERAPY [Suspect]
     Dosage: 2 GY PER DAY
     Dates: start: 20051024, end: 20051026
  10. RADIOTHERAPY [Suspect]
     Dosage: 2 GY PER DAY
     Dates: start: 20051110, end: 20051110
  11. RADIOTHERAPY [Suspect]
     Dosage: 2 GY PER DAY
     Dates: start: 20051114, end: 20051118
  12. BEFACT FORTE [Concomitant]
     Indication: PROPHYLAXIS
     Route: 048
     Dates: start: 20051003
  13. VOLTAREN [Concomitant]
     Indication: PAIN
     Route: 048
     Dates: start: 20050901
  14. ASPIRINE JUNIOR [Concomitant]
     Indication: PROPHYLAXIS
     Route: 048
  15. DAFALGAN CODEINE [Concomitant]
     Indication: PAIN
     Route: 048
     Dates: start: 20050901
  16. LAXOBERON [Concomitant]
     Indication: CONSTIPATION
     Route: 048
     Dates: start: 20051012, end: 20051012
  17. ACIDEXAM [Concomitant]
     Indication: PROPHYLAXIS
     Dates: start: 20051012, end: 20051013
  18. LITICAN [Concomitant]
     Indication: PROPHYLAXIS
     Dates: start: 20051012, end: 20051013
  19. NOVABAN [Concomitant]
     Indication: PROPHYLAXIS
     Dates: start: 20051012, end: 20051012
  20. ACETYLCYSTEINE [Concomitant]
     Indication: COUGH
     Route: 048
     Dates: start: 20050901
  21. GLAZIDIM [Concomitant]
     Indication: INFECTION
     Route: 042
     Dates: start: 20051115

REACTIONS (3)
  - DIARRHOEA [None]
  - INFECTION [None]
  - PYREXIA [None]
